FAERS Safety Report 5362375-9 (Version None)
Quarter: 2007Q2

REPORT INFORMATION
  Report Type: 
  Country: None (occurrence: None)
  Receive Date: 20070619
  Receipt Date: 20070618
  Transmission Date: 20071010
  Serious: Yes (Hospitalization)
  Sender: FDA-Public Use
  Company Number: US-BRISTOL-MYERS SQUIBB COMPANY-13817754

PATIENT
  Age: 57 Year
  Sex: Male
  Weight: 78 kg

DRUGS (9)
  1. PACLITAXEL [Suspect]
     Route: 042
     Dates: start: 20061114, end: 20061114
  2. CARBOPLATIN [Suspect]
     Route: 042
     Dates: start: 20061114, end: 20061114
  3. ETOPOSIDE [Suspect]
     Route: 048
     Dates: start: 20061114, end: 20061123
  4. COMPAZINE [Concomitant]
     Indication: NAUSEA
     Dates: start: 20061114
  5. HYDROCHLOROTHIAZIDE [Concomitant]
     Indication: HYPERTENSION
     Dates: start: 20011001, end: 20061201
  6. LOTREL [Concomitant]
     Indication: HYPERTENSION
     Dates: start: 20011001, end: 20061201
  7. PROTONIX [Concomitant]
     Indication: GASTROOESOPHAGEAL REFLUX DISEASE
     Dates: start: 19961001
  8. MS CONTIN [Concomitant]
     Indication: PAIN
     Dates: start: 20061114
  9. OXYCODONE HCL [Concomitant]
     Indication: PAIN
     Dates: start: 20061114

REACTIONS (3)
  - BONE MARROW FAILURE [None]
  - DEHYDRATION [None]
  - FATIGUE [None]
